FAERS Safety Report 5232129-2 (Version None)
Quarter: 2007Q1

REPORT INFORMATION
  Report Type: 
  Country: None (occurrence: None)
  Receive Date: 20061201
  Receipt Date: 20061027
  Transmission Date: 20070707
  Serious: No
  Sender: FDA-Public Use
  Company Number: US200610005162

PATIENT
  Sex: Female

DRUGS (2)
  1. CYMBALTA [Suspect]
  2. OTHER ANALGESICS AND ANTIPYRETICS [Concomitant]

REACTIONS (3)
  - ABNORMAL BEHAVIOUR [None]
  - CONFUSIONAL STATE [None]
  - FEELING ABNORMAL [None]
